FAERS Safety Report 14679912 (Version 1)
Quarter: 2018Q1

REPORT INFORMATION
  Report Type: Spontaneous
  Country: GB (occurrence: GB)
  Receive Date: 20180326
  Receipt Date: 20180326
  Transmission Date: 20180509
  Serious: Yes (Hospitalization, Other)
  Sender: FDA-Public Use
  Company Number: GB-BRISTOL-MYERS SQUIBB COMPANY-BMS-2018-026848

PATIENT
  Age: 84 Year
  Sex: Male

DRUGS (2)
  1. CONTRAST MEDIA [Interacting]
     Active Substance: UNSPECIFIED INGREDIENT
     Indication: COMPUTERISED TOMOGRAM
     Dosage: UNK
     Route: 065
     Dates: start: 20171216, end: 20171216
  2. METFORMIN HYDROCHLORIDE. [Suspect]
     Active Substance: METFORMIN HYDROCHLORIDE
     Indication: PRODUCT USED FOR UNKNOWN INDICATION
     Dosage: 2 G, QD
     Route: 065

REACTIONS (5)
  - Metabolic acidosis [Unknown]
  - Nephropathy toxic [Unknown]
  - Labelled drug-drug interaction medication error [Unknown]
  - Hyperlactacidaemia [Unknown]
  - Hyperkalaemia [Unknown]
